FAERS Safety Report 25584421 (Version 1)
Quarter: 2025Q3

REPORT INFORMATION
  Report Type: Report from Study
  Country: US (occurrence: US)
  Receive Date: 20250721
  Receipt Date: 20250721
  Transmission Date: 20251021
  Serious: Yes (Other)
  Sender: TAKEDA
  Company Number: US-TAKEDA-2024TUS120565

PATIENT
  Sex: Male
  Weight: 65.86 kg

DRUGS (4)
  1. BRIGATINIB [Suspect]
     Active Substance: BRIGATINIB
     Indication: Neurofibromatosis
     Dosage: 180 MILLIGRAM, QD
     Dates: start: 20241112
  2. BRIGATINIB [Suspect]
     Active Substance: BRIGATINIB
     Dosage: 180 MILLIGRAM, QD
  3. BRIGATINIB [Suspect]
     Active Substance: BRIGATINIB
  4. MELATONIN [Concomitant]
     Active Substance: MELATONIN
     Indication: Sleep disorder

REACTIONS (12)
  - Renal impairment [Recovered/Resolved]
  - Product use issue [Unknown]
  - Blood triglycerides increased [Unknown]
  - Hepatic enzyme increased [Unknown]
  - Blood creatine phosphokinase abnormal [Recovered/Resolved]
  - Blood creatine phosphokinase increased [Unknown]
  - Hepatic steatosis [Unknown]
  - Solar lentigo [Unknown]
  - Dyspepsia [Recovering/Resolving]
  - Aphthous ulcer [Unknown]
  - Diarrhoea [Recovering/Resolving]
  - Asthenia [Unknown]
